FAERS Safety Report 4262991-1 (Version None)
Quarter: 2004Q1

REPORT INFORMATION
  Report Type: 
  Country: None (occurrence: None)
  Receive Date: 20040102
  Receipt Date: 20040102
  Transmission Date: 20041129
  Serious: No
  Sender: FDA-Public Use
  Company Number: None

PATIENT
  Age: 80 Year
  Sex: Male
  Weight: 92.9874 kg

DRUGS (9)
  1. TAXOL [Suspect]
     Indication: NON-SMALL CELL LUNG CANCER
     Dosage: 200MG/M2 IV Q 3 WKS
     Route: 042
     Dates: start: 20031209, end: 20031230
  2. CARBOPLATIN [Suspect]
     Indication: NON-SMALL CELL LUNG CANCER
     Dosage: AUC =6 IV Q 3 WKS
     Route: 042
     Dates: start: 20031209, end: 20031230
  3. GLUCOPHAGE [Concomitant]
  4. GLYNASE [Concomitant]
  5. PROTONIX [Concomitant]
  6. AMLODIPINE BESYLATE [Concomitant]
  7. ATENOLOL [Concomitant]
  8. VIOXX [Concomitant]
  9. GLUCOSAMINE [Concomitant]

REACTIONS (3)
  - DERMATITIS EXFOLIATIVE [None]
  - RASH MACULO-PAPULAR [None]
  - RASH PRURITIC [None]
